FAERS Safety Report 6812837-X (Version None)
Quarter: 2010Q3

REPORT INFORMATION
  Report Type: 
  Country: None (occurrence: None)
  Receive Date: 20100701
  Receipt Date: 20100619
  Transmission Date: 20110219
  Serious: Yes (Other)
  Sender: FDA-Public Use
  Company Number: GB-EISAI INC.-E3810-03902-SPO-GB

PATIENT
  Age: 79 Year
  Sex: Male

DRUGS (1)
  1. PARIET (RABEPRAZOLE) [Suspect]
     Dosage: UNKNOWN
     Route: 048
     Dates: start: 20100618

REACTIONS (2)
  - DRY THROAT [None]
  - URINE FLOW DECREASED [None]
